FAERS Safety Report 14006682 (Version 2)
Quarter: 2017Q4

REPORT INFORMATION
  Report Type: Report from Study
  Country: None (occurrence: CA)
  Receive Date: 20170925
  Receipt Date: 20171013
  Transmission Date: 20180321
  Serious: Yes (Death, Other)
  Sender: FDA-Public Use
  Company Number: CA-ABBVIE-17K-028-2111140-00

PATIENT
  Sex: Male

DRUGS (1)
  1. HUMIRA [Suspect]
     Active Substance: ADALIMUMAB
     Indication: PSORIASIS
     Route: 058
     Dates: end: 201607

REACTIONS (3)
  - Diabetes mellitus [Not Recovered/Not Resolved]
  - Dialysis [Unknown]
  - Malaise [Fatal]

NARRATIVE: CASE EVENT DATE: 2016
